FAERS Safety Report 4476137-8 (Version None)
Quarter: 2004Q3

REPORT INFORMATION
  Report Type: 
  Country: None (occurrence: None)
  Receive Date: 20040923
  Receipt Date: 20040713
  Transmission Date: 20050211
  Serious: No
  Sender: FDA-Public Use
  Company Number: USA040670556

PATIENT
  Age: 81 Year
  Sex: Female
  Weight: 58 kg

DRUGS (8)
  1. FORTEO [Suspect]
     Indication: OSTEOPOROSIS
     Dosage: 20 UG DAY
     Dates: start: 20040614
  2. ACTONEL [Concomitant]
  3. TRIAMTERENE AND HYDROCHLOROTHIAZIDE [Concomitant]
  4. ASACOL [Concomitant]
  5. NROVASC (AMLODIPINE) [Concomitant]
  6. DETROL LA (TOLTERODINE L-TARTRATE) [Concomitant]
  7. RANITIDINE [Concomitant]
  8. MULTI-VITAMIN [Concomitant]

REACTIONS (1)
  - INJECTION SITE HAEMORRHAGE [None]
